FAERS Safety Report 6048946-5 (Version None)
Quarter: 2009Q1

REPORT INFORMATION
  Report Type: 
  Country: None (occurrence: None)
  Receive Date: 20090123
  Receipt Date: 20090113
  Transmission Date: 20090719
  Serious: Yes (Hospitalization)
  Sender: FDA-Public Use
  Company Number: US-ELI_LILLY_AND_COMPANY-US200808000272

PATIENT
  Sex: Male
  Weight: 124.94 kg

DRUGS (15)
  1. BYETTA [Suspect]
     Indication: TYPE 2 DIABETES MELLITUS
     Dosage: 10 UG, UNKNOWN
     Route: 058
     Dates: start: 20070301, end: 20070401
  2. BYETTA [Suspect]
     Dosage: 10 UG, 2/D
     Route: 058
     Dates: start: 20070401
  3. LIPITOR [Concomitant]
     Dosage: UNK, UNKNOWN
     Route: 048
     Dates: end: 20080108
  4. LIPITOR [Concomitant]
     Dosage: 80 MG, UNK
     Route: 048
     Dates: start: 20080108
  5. LEVEMIR [Concomitant]
     Dosage: UNK, UNKNOWN
     Route: 058
     Dates: start: 20080123
  6. METFORMIN HCL [Concomitant]
     Dosage: 1000 MG, 2/D
     Route: 048
  7. LASIX [Concomitant]
     Dosage: 40 MG, UNKNOWN
     Route: 048
  8. ZESTRIL [Concomitant]
     Indication: HYPERTENSION
     Dosage: 10 MG, DAILY (1/D)
     Route: 048
     Dates: end: 20080601
  9. CIALIS [Concomitant]
     Indication: ERECTILE DYSFUNCTION
     Dosage: 20 MG, AS NEEDED
     Route: 048
  10. ACTOS [Concomitant]
     Dosage: 30 MG, DAILY (1/D)
     Route: 048
  11. OMEPRAZOLE SODIUM [Concomitant]
  12. NOVOLOG MIX 70/30 [Concomitant]
  13. NOVOLOG [Concomitant]
     Dosage: UNK, AS NEEDED
     Route: 058
  14. BENICAR [Concomitant]
     Dosage: 20 MG, DAILY (1/D)
     Route: 048
  15. AMBIEN [Concomitant]
     Indication: SLEEP DISORDER

REACTIONS (1)
  - PANCREATITIS [None]
